FAERS Safety Report 11578474 (Version 1)
Quarter: 2015Q3

REPORT INFORMATION
  Report Type: Spontaneous
  Country: US (occurrence: US)
  Receive Date: 20150916
  Receipt Date: 20150916
  Transmission Date: 20151125
  Serious: Yes (Hospitalization, Other)
  Sender: FDA-Public Use
  Company Number: US-ELI_LILLY_AND_COMPANY-US201307002354

PATIENT
  Age: 62 Year
  Sex: Female
  Weight: 104.3 kg

DRUGS (1)
  1. HUMALOG [Suspect]
     Active Substance: INSULIN LISPRO

REACTIONS (2)
  - Blood glucose decreased [Not Recovered/Not Resolved]
  - Hypoglycaemic unconsciousness [Unknown]

NARRATIVE: CASE EVENT DATE: 201306
